FAERS Safety Report 8350251 (Version 2)
Quarter: 2012Q4

REPORT INFORMATION
  Report Type: 
  Country: US (occurrence: US)
  Receive Date: 20120124
  Receipt Date: 20121211
  Transmission Date: 20130627
  Serious: Yes (Other)
  Sender: FDA-Public Use
  Company Number: US-RANBAXY-2012US-51934

PATIENT
  Age: 46 Year
  Sex: Male

DRUGS (4)
  1. IBUPROFEN [Suspect]
     Indication: PYREXIA
     Dosage: UNK
     Route: 065
  2. IBUPROFEN [Suspect]
     Indication: CHILLS
  3. IBUPROFEN [Suspect]
     Indication: DECREASED APPETITE
  4. IBUPROFEN [Suspect]
     Indication: PAIN

REACTIONS (3)
  - Portal vein phlebitis [Unknown]
  - Erosive oesophagitis [Unknown]
  - Gastritis [Unknown]
